FAERS Safety Report 9603779 (Version 1)
Quarter: 2013Q4

REPORT INFORMATION
  Report Type: Spontaneous
  Country: US (occurrence: US)
  Receive Date: 20131007
  Receipt Date: 20131007
  Transmission Date: 20140711
  Serious: No
  Sender: FDA-Public Use
  Company Number: US-B.I. PHARMACEUTICALS,INC./RIDGEFIELD-2013-BI-30568BP

PATIENT
  Age: 54 Year
  Sex: Male
  Weight: 122 kg

DRUGS (4)
  1. MICARDIS [Suspect]
     Indication: HYPERTENSION
     Dosage: 80 MG
     Route: 048
     Dates: start: 2012
  2. ASPIRIN [Concomitant]
     Dosage: 81 MG
     Route: 048
  3. NORCO [Concomitant]
     Indication: BACK PAIN
     Dosage: DOSE PER APPLICATION: 10MG/325 MG; DAILY DOSE: 40MG/1300 MG
     Route: 048
  4. CHOLESTYRAMINE [Concomitant]
     Indication: BLOOD CHOLESTEROL INCREASED
     Dosage: DOSE PER APPLICATION: 2 TABLESPOONS; DAILY DOSE: 2 TABLESPOONS
     Route: 048

REACTIONS (5)
  - Weight increased [Not Recovered/Not Resolved]
  - Headache [Not Recovered/Not Resolved]
  - Dizziness [Not Recovered/Not Resolved]
  - Hypotension [Not Recovered/Not Resolved]
  - Orthostatic hypotension [Not Recovered/Not Resolved]
